FAERS Safety Report 4547379-8 (Version None)
Quarter: 2005Q1

REPORT INFORMATION
  Report Type: 
  Country: None (occurrence: None)
  Receive Date: 20050107
  Receipt Date: 20040921
  Transmission Date: 20050727
  Serious: Yes (Hospitalization)
  Sender: FDA-Public Use
  Company Number: PHRM2004FR02850

PATIENT
  Age: 39 Year
  Sex: Male
  Weight: 82 kg

DRUGS (6)
  1. ZOMETA [Suspect]
     Indication: RENAL CELL CARCINOMA STAGE UNSPECIFIED
     Route: 042
     Dates: start: 20040706, end: 20040706
  2. ROFERON [Suspect]
     Indication: RENAL CELL CARCINOMA STAGE UNSPECIFIED
     Dosage: 6M OF IU IN THE EVENING D1,D3,D5
     Route: 058
     Dates: start: 20040706, end: 20040710
  3. PROLEUKIN [Suspect]
     Indication: RENAL CELL CARCINOMA STAGE UNSPECIFIED
     Dosage: 9 M IU TWICE D1 TO D5
     Route: 058
     Dates: start: 20040706, end: 20040710
  4. ASPEGIC 325 [Suspect]
     Dates: start: 20040706, end: 20040710
  5. ACETAMINOPHEN [Concomitant]
  6. FRAXODI [Concomitant]

REACTIONS (11)
  - BLOOD CREATININE INCREASED [None]
  - BLOOD GLUCOSE INCREASED [None]
  - BLOOD POTASSIUM INCREASED [None]
  - BLOOD UREA INCREASED [None]
  - DIALYSIS [None]
  - FLUID REPLACEMENT [None]
  - HAEMATURIA [None]
  - HYPOCALCAEMIA [None]
  - RENAL FAILURE ACUTE [None]
  - TUMOUR LYSIS SYNDROME [None]
  - VOMITING [None]
